FAERS Safety Report 9268010 (Version 1)
Quarter: 2013Q2

REPORT INFORMATION
  Report Type: Spontaneous
  Country: US (occurrence: US)
  Receive Date: 20130502
  Receipt Date: 20130502
  Transmission Date: 20140414
  Serious: Yes (Hospitalization, Other)
  Sender: FDA-Public Use
  Company Number: US-ALEXION PHARMACEUTICALS INC.-A201201473

PATIENT
  Age: 41 Year
  Sex: Female

DRUGS (2)
  1. SOLIRIS 300MG [Suspect]
     Indication: HAEMOLYTIC URAEMIC SYNDROME
     Dosage: UNK
     Route: 042
  2. PERCOCET [Suspect]
     Indication: LIMB OPERATION
     Dosage: 2 DF, SINGLE

REACTIONS (5)
  - Limb operation [Unknown]
  - Suture rupture [Unknown]
  - Suture removal [Unknown]
  - Pain [Unknown]
  - Vomiting [Unknown]
